FAERS Safety Report 13210450 (Version 1)
Quarter: 2017Q1

REPORT INFORMATION
  Report Type: Spontaneous
  Country: US (occurrence: US)
  Receive Date: 20170210
  Receipt Date: 20170210
  Transmission Date: 20170428
  Serious: No
  Sender: FDA-Public Use
  Company Number: US-BAYER-2017-027201

PATIENT
  Age: 14 Year
  Sex: Female
  Weight: 63.49 kg

DRUGS (2)
  1. GADAVIST [Suspect]
     Active Substance: GADOBUTROL
     Indication: ARACHNOID CYST
     Dosage: UNK, ONCE
     Dates: start: 20170209
  2. GADAVIST [Suspect]
     Active Substance: GADOBUTROL
     Indication: OPTIC ATROPHY

REACTIONS (5)
  - Chest discomfort [None]
  - Nausea [None]
  - Vomiting [None]
  - Rash [None]
  - Dyspnoea [None]
